FAERS Safety Report 18449964 (Version 3)
Quarter: 2020Q4

REPORT INFORMATION
  Report Type: Spontaneous
  Country: CN (occurrence: CN)
  Receive Date: 20201102
  Receipt Date: 20201123
  Transmission Date: 20210114
  Serious: Yes (Death, Other)
  Sender: FDA-Public Use
  Company Number: CN-JIANGSU HENGRUI MEDICINE CO., LTD.-2093493

PATIENT
  Age: 72 Year
  Sex: Female
  Weight: 39 kg

DRUGS (3)
  1. LOBAPLATIN [Suspect]
     Active Substance: LOBAPLATIN
     Route: 025
     Dates: start: 20200825, end: 20200825
  2. IRINOTECAN HYDROCHLORIDE INJECTION, 20 MG/ML (2 ML AND 5 ML VIALS) (AN [Suspect]
     Active Substance: IRINOTECAN HYDROCHLORIDE
     Indication: NEUROENDOCRINE CARCINOMA METASTATIC
     Route: 041
     Dates: start: 20200515, end: 20200825
  3. STAPHYLOCOCCIN (STAPHYLOCOCCAL ENTEROTOXIN C) [Suspect]
     Active Substance: INVESTIGATIONAL PRODUCT
     Route: 025
     Dates: start: 20200825, end: 20200825

REACTIONS (10)
  - Asthenia [Unknown]
  - Product use issue [Unknown]
  - Vomiting [Unknown]
  - Pallor [Unknown]
  - Myelosuppression [Fatal]
  - Infection [Unknown]
  - Product use in unapproved indication [Unknown]
  - Cardiac failure [Fatal]
  - Diarrhoea [Recovering/Resolving]
  - Nausea [Unknown]

NARRATIVE: CASE EVENT DATE: 20200515
